FAERS Safety Report 4647781-X (Version None)
Quarter: 2005Q2

REPORT INFORMATION
  Report Type: 
  Country: None (occurrence: None)
  Receive Date: 20050427
  Receipt Date: 20050427
  Transmission Date: 20051028
  Serious: Yes (Hospitalization)
  Sender: FDA-Public Use
  Company Number: None

PATIENT
  Sex: Male
  Weight: 63.5036 kg

DRUGS (1)
  1. ZEMURON [Suspect]
     Indication: NEUROMUSCULAR BLOCKADE
     Dosage: 50MG ONE TIME INTRAVENOUS
     Route: 042
     Dates: start: 20050413, end: 20050413

REACTIONS (1)
  - NEUROMUSCULAR BLOCK PROLONGED [None]
